FAERS Safety Report 8972381 (Version 1)
Quarter: 2012Q4

REPORT INFORMATION
  Report Type: 
  Country: US (occurrence: US)
  Receive Date: 20121218
  Receipt Date: 20121218
  Transmission Date: 20130627
  Serious: Yes (Hospitalization)
  Sender: FDA-Public Use
  Company Number: US-ROCHE-1160306

PATIENT
  Age: 33 Year
  Sex: Female

DRUGS (6)
  1. ACTEMRA [Suspect]
     Indication: RHEUMATOID ARTHRITIS
     Route: 042
     Dates: start: 20121026, end: 20121026
  2. METHOTREXATE [Concomitant]
     Indication: RHEUMATOID ARTHRITIS
     Route: 030
  3. IBUPROFEN [Concomitant]
     Indication: RHEUMATOID ARTHRITIS
     Route: 048
  4. HYDROCODONE/ACETAMINOPHEN [Concomitant]
     Indication: PAIN
     Dosage: 7.5 mg /750
     Route: 048
  5. PROCRIT [Concomitant]
     Indication: PAIN
     Route: 048
     Dates: start: 20121107
  6. XANAX [Concomitant]

REACTIONS (3)
  - Abdominal pain [Recovered/Resolved]
  - Intestinal infarction [Unknown]
  - Constipation [Recovered/Resolved]
